FAERS Safety Report 8226702-7 (Version None)
Quarter: 2012Q1

REPORT INFORMATION
  Report Type: 
  Country: None (occurrence: None)
  Receive Date: 20120322
  Receipt Date: 20120315
  Transmission Date: 20120608
  Serious: Yes (Hospitalization)
  Sender: FDA-Public Use
  Company Number: US-BAYER-2011-111968

PATIENT
  Age: 42 Year
  Sex: Female
  Weight: 82.1 kg

DRUGS (3)
  1. LEVOTHYROXINE SODIUM [Concomitant]
     Dosage: 0.05 MG, DAILY
  2. YAZ [Suspect]
     Dosage: UNK
     Dates: start: 20071001
  3. VALTREX [Concomitant]
     Dosage: 500 MG, DAILY

REACTIONS (3)
  - INJURY [None]
  - DEEP VEIN THROMBOSIS [None]
  - PAIN [None]
